FAERS Safety Report 11538366 (Version 3)
Quarter: 2015Q4

REPORT INFORMATION
  Report Type: Spontaneous
  Country: US (occurrence: US)
  Receive Date: 20150922
  Receipt Date: 20151222
  Transmission Date: 20160304
  Serious: Yes (Other)
  Sender: FDA-Public Use
  Company Number: US-PFIZER INC-2014164289

PATIENT
  Sex: Male
  Weight: 3.57 kg

DRUGS (1)
  1. BENEFIX [Suspect]
     Active Substance: COAGULATION FACTOR IX RECOMBINANT HUMAN\ISOPROPYL ALCOHOL
     Indication: FACTOR IX DEFICIENCY
     Dosage: 1 SHOT 2000 UNITS BEFORE BIRTH, AND 3 SHOTS AFTER BIRTH
     Route: 064

REACTIONS (2)
  - Maternal exposure during pregnancy [Unknown]
  - Pertussis [Unknown]
